FAERS Safety Report 6558064-5 (Version None)
Quarter: 2010Q1

REPORT INFORMATION
  Report Type: 
  Country: None (occurrence: None)
  Receive Date: 20100126
  Receipt Date: 20091218
  Transmission Date: 20100710
  Serious: Yes (Hospitalization)
  Sender: FDA-Public Use
  Company Number: 003460

PATIENT
  Sex: Female
  Weight: 79.5 kg

DRUGS (4)
  1. CIMZIA [Suspect]
     Indication: COLITIS
     Dosage: 400 MG SQ, SUBCUTANEOUS
     Route: 058
     Dates: start: 20090201
  2. COLICORT [Concomitant]
  3. ULTRAM [Concomitant]
  4. PAXIL [Concomitant]

REACTIONS (3)
  - COLITIS [None]
  - CONDITION AGGRAVATED [None]
  - PROCTALGIA [None]
